FAERS Safety Report 8129731-7 (Version None)
Quarter: 2012Q1

REPORT INFORMATION
  Report Type: 
  Country: None (occurrence: None)
  Receive Date: 20120210
  Receipt Date: 20120203
  Transmission Date: 20120608
  Serious: No
  Sender: FDA-Public Use
  Company Number: US-B.I. PHARMACEUTICALS,INC./RIDGEFIELD-2012-BP-02213BP

PATIENT
  Sex: Male

DRUGS (3)
  1. FISH OIL [Concomitant]
     Indication: PROPHYLAXIS
     Dates: start: 20050101, end: 20120123
  2. SPIRIVA [Suspect]
     Indication: CHRONIC OBSTRUCTIVE PULMONARY DISEASE
     Dosage: 18 MCG
     Route: 055
     Dates: start: 20111220, end: 20120123
  3. MULTI-VITAMIN [Concomitant]
     Indication: PROPHYLAXIS
     Dates: start: 20050101, end: 20120123

REACTIONS (6)
  - HEADACHE [None]
  - ABDOMINAL PAIN [None]
  - CONSTIPATION [None]
  - URINARY RETENTION [None]
  - DRUG INEFFECTIVE [None]
  - DIZZINESS [None]
